FAERS Safety Report 4474666-4 (Version None)
Quarter: 2004Q4

REPORT INFORMATION
  Report Type: 
  Country: None (occurrence: None)
  Receive Date: 20041012
  Receipt Date: 20041001
  Transmission Date: 20050328
  Serious: Yes (Hospitalization, Other)
  Sender: FDA-Public Use
  Company Number: STA-AE-04-MTX-455

PATIENT
  Age: 58 Year
  Sex: Female

DRUGS (3)
  1. METHOTREXATE [Suspect]
     Indication: RHEUMATOID ARTHRITIS
     Dosage: 15 MG 1X PER 1 WK
     Dates: start: 20040601, end: 20040819
  2. VIOXX [Concomitant]
  3. LEVAKIN (LEVOTHYROXINE SODIUM) [Concomitant]

REACTIONS (2)
  - HEPATIC ENZYME INCREASED [None]
  - PNEUMONITIS [None]
